FAERS Safety Report 8475132 (Version 3)
Quarter: 2013Q1

REPORT INFORMATION
  Report Type: Spontaneous
  Country: CA (occurrence: CA)
  Receive Date: 20120323
  Receipt Date: 20130206
  Transmission Date: 20140127
  Serious: Yes (Other)
  Sender: FDA-Public Use
  Company Number: PHHY2012CA014306

PATIENT
  Sex: Male

DRUGS (1)
  1. SANDOSTATIN LAR [Suspect]
     Indication: ACROMEGALY
     Dosage: 20 MG, EVERY 4 WEEKS
     Route: 030
     Dates: start: 20051104

REACTIONS (5)
  - Photosensitivity reaction [Unknown]
  - Rash generalised [Unknown]
  - Pyrexia [Unknown]
  - Pruritus [Unknown]
  - Eczema [Unknown]
